FAERS Safety Report 12867672 (Version 1)
Quarter: 2016Q4

REPORT INFORMATION
  Report Type: Spontaneous
  Country: US (occurrence: US)
  Receive Date: 20161020
  Receipt Date: 20161020
  Transmission Date: 20170207
  Serious: Yes (Other)
  Sender: FDA-Public Use
  Company Number: PHHY2016US142405

PATIENT
  Age: 55 Year
  Sex: Male

DRUGS (2)
  1. TESTOSTERONE CYPIONATE. [Suspect]
     Active Substance: TESTOSTERONE CYPIONATE
     Indication: HYPOGONADISM
     Dosage: 50 MG, QW
     Route: 065
  2. HCG [Suspect]
     Active Substance: GONADOTROPHIN, CHORIONIC
     Indication: HYPOGONADISM
     Dosage: 500 IU, QW
     Route: 065

REACTIONS (4)
  - Blood testosterone increased [Unknown]
  - Deep vein thrombosis [Unknown]
  - Oestradiol increased [Unknown]
  - Pulmonary embolism [Unknown]
